FAERS Safety Report 8215392-5 (Version None)
Quarter: 2012Q1

REPORT INFORMATION
  Report Type: 
  Country: None (occurrence: None)
  Receive Date: 20120316
  Receipt Date: 20120312
  Transmission Date: 20120608
  Serious: Yes (Other)
  Sender: FDA-Public Use
  Company Number: BR-PFIZER INC-2012064932

PATIENT
  Age: 52 Year
  Sex: Male

DRUGS (3)
  1. OPTIVE [Concomitant]
     Indication: INTRAOCULAR PRESSURE TEST
     Dosage: UNK
     Dates: start: 20110901
  2. XALATAN [Suspect]
     Indication: INTRAOCULAR PRESSURE TEST
     Dosage: 4.5 UG 1 DROP IN EACH EYE 3X/DAY
     Route: 047
     Dates: start: 20070101
  3. OCUPRESS [Concomitant]
     Indication: INTRAOCULAR PRESSURE TEST
     Dosage: UNK
     Dates: start: 20110101, end: 20110101

REACTIONS (1)
  - RETINAL DETACHMENT [None]
